FAERS Safety Report 16617445 (Version 2)
Quarter: 2019Q3

REPORT INFORMATION
  Report Type: Spontaneous
  Country: US (occurrence: US)
  Receive Date: 20190723
  Receipt Date: 20190730
  Transmission Date: 20191004
  Serious: Yes (Congenital Anomaly, Other)
  Sender: FDA-Public Use
  Company Number: US-ASTRAZENECA-2018SF26154

PATIENT
  Age: 24088 Day
  Sex: Male

DRUGS (16)
  1. COREG [Concomitant]
     Active Substance: CARVEDILOL
  2. LORTAB [Concomitant]
     Active Substance: ACETAMINOPHEN\HYDROCODONE BITARTRATE
  3. NIACIN. [Concomitant]
     Active Substance: NIACIN
  4. LASIX [Concomitant]
     Active Substance: FUROSEMIDE
  5. DEXTROSE. [Concomitant]
     Active Substance: DEXTROSE
  6. ALBUTEROL. [Concomitant]
     Active Substance: ALBUTEROL
  7. FLOMAX [Concomitant]
     Active Substance: TAMSULOSIN HYDROCHLORIDE
  8. PRILOSEC [Suspect]
     Active Substance: OMEPRAZOLE MAGNESIUM
     Route: 048
     Dates: start: 2013, end: 2017
  9. AMBIEN [Concomitant]
     Active Substance: ZOLPIDEM TARTRATE
  10. LISINOPRIL. [Concomitant]
     Active Substance: LISINOPRIL
  11. PROTONIX [Suspect]
     Active Substance: PANTOPRAZOLE SODIUM
     Route: 065
     Dates: start: 2013, end: 2017
  12. ASPIRINE [Concomitant]
     Active Substance: ASPIRIN
  13. COUMARIN [Concomitant]
     Active Substance: COUMARIN
  14. DOXAZOSIN [Concomitant]
     Active Substance: DOXAZOSIN MESYLATE
  15. SENNA [Concomitant]
     Active Substance: SENNA LEAF\SENNOSIDES\SENNOSIDES A AND B
  16. NIFEDIPINE. [Concomitant]
     Active Substance: NIFEDIPINE

REACTIONS (5)
  - Renal failure [Unknown]
  - Acute kidney injury [Unknown]
  - Renal impairment [Unknown]
  - End stage renal disease [Unknown]
  - Chronic kidney disease [Unknown]

NARRATIVE: CASE EVENT DATE: 20130106
